FAERS Safety Report 15201539 (Version 2)
Quarter: 2019Q1

REPORT INFORMATION
  Report Type: Report from Study
  Country: US (occurrence: US)
  Receive Date: 20180726
  Receipt Date: 20190206
  Transmission Date: 20190417
  Serious: Yes (Other)
  Sender: FDA-Public Use
  Company Number: US-ROCHE-2153777

PATIENT
  Age: 65 Year
  Sex: Female
  Weight: 84.9 kg

DRUGS (2)
  1. ACTEMRA [Suspect]
     Active Substance: TOCILIZUMAB
     Indication: TEMPORAL ARTERITIS
     Route: 058
     Dates: start: 201803, end: 201807
  2. ACTEMRA [Suspect]
     Active Substance: TOCILIZUMAB
     Indication: SYSTEMIC LUPUS ERYTHEMATOSUS

REACTIONS (10)
  - Anger [Recovering/Resolving]
  - Dyspepsia [Recovered/Resolved]
  - Amnesia [Recovering/Resolving]
  - Abdominal distension [Recovering/Resolving]
  - Pruritus [Recovered/Resolved]
  - Swelling [Recovering/Resolving]
  - Fluid retention [Unknown]
  - Depression [Recovering/Resolving]
  - Skin papilloma [Recovered/Resolved]
  - Rash [Recovered/Resolved]

NARRATIVE: CASE EVENT DATE: 201805
